FAERS Safety Report 6104515-X (Version None)
Quarter: 2009Q1

REPORT INFORMATION
  Report Type: 
  Country: None (occurrence: None)
  Receive Date: 20090305
  Receipt Date: 20090227
  Transmission Date: 20090719
  Serious: Yes (Death)
  Sender: FDA-Public Use
  Company Number: US-ROXANE LABORATORIES, INC.-2008-BP-13681RO

PATIENT
  Sex: Female
  Weight: 105 kg

DRUGS (30)
  1. METHADONE HCL [Suspect]
     Indication: PAIN
     Dates: start: 20050601
  2. METHADONE HCL [Suspect]
     Dates: start: 20060601
  3. METHADONE HCL [Suspect]
     Dates: start: 20060706
  4. METHADONE HCL [Suspect]
  5. METHADONE HCL [Suspect]
  6. METHADOSE [Suspect]
     Indication: PAIN
     Dates: start: 20060713
  7. TRAMADOL HCL [Suspect]
  8. SOMA [Concomitant]
  9. CLONAZEPAM [Concomitant]
     Indication: RESTLESS LEGS SYNDROME
     Dates: start: 20050808
  10. ALBUTEROL [Concomitant]
  11. MIRALAZ [Concomitant]
  12. EFFEXOR [Concomitant]
     Indication: DEPRESSION
     Dosage: 300MG
     Dates: start: 20030101
  13. DETROL LA 10/500 [Concomitant]
     Route: 048
  14. DETROL LA 10/500 [Concomitant]
     Dosage: 2MG
     Route: 048
     Dates: start: 20050620
  15. ASPIRIN [Concomitant]
  16. BENICAR [Concomitant]
     Dosage: 20MG
  17. ADVICOR [Concomitant]
  18. HYDROCODONE [Concomitant]
     Dates: start: 20030101
  19. HYDROCODONE [Concomitant]
  20. PROTONIC [Concomitant]
     Dosage: 40MG
     Route: 048
     Dates: start: 20030101
  21. SYNTHROID [Concomitant]
     Dosage: 25MCG
     Route: 048
     Dates: start: 20050620
  22. MOBIC [Concomitant]
  23. RESTORIL [Concomitant]
  24. CELEBREX [Concomitant]
     Indication: ARTHRALGIA
     Dates: start: 20030101, end: 20060701
  25. CELEBREX [Concomitant]
     Indication: MYOFASCIAL PAIN SYNDROME
     Dosage: 200MG
     Route: 048
     Dates: start: 20050509
  26. AMBIEN [Concomitant]
     Dates: end: 20060701
  27. TEMAZEPAM [Concomitant]
  28. QVAR 40 [Concomitant]
  29. MULTIPLE MEDICATIONS [Concomitant]
     Indication: POLIOMYELITIS
  30. HYDROCODONE BITARTRATE + ACETAMINOPHEN [Concomitant]

REACTIONS (17)
  - AORTIC ARTERIOSCLEROSIS [None]
  - ARTHRALGIA [None]
  - BACK PAIN [None]
  - CARDIOMEGALY [None]
  - CARDIOVASCULAR DISORDER [None]
  - DRUG INEFFECTIVE [None]
  - DRUG TOXICITY [None]
  - HEPATOSPLENOMEGALY [None]
  - HYPERTENSION [None]
  - HYPOAESTHESIA [None]
  - LEFT VENTRICULAR HYPERTROPHY [None]
  - MYALGIA [None]
  - PAIN IN EXTREMITY [None]
  - PULMONARY CONGESTION [None]
  - SNORING [None]
  - URINARY BLADDER POLYP [None]
  - WALKING AID USER [None]
